FAERS Safety Report 8195722-3 (Version None)
Quarter: 2012Q1

REPORT INFORMATION
  Report Type: 
  Country: None (occurrence: None)
  Receive Date: 20120308
  Receipt Date: 20120222
  Transmission Date: 20120608
  Serious: Yes (Other)
  Sender: FDA-Public Use
  Company Number: JP-VALEANT-2012VX000938

PATIENT

DRUGS (5)
  1. OXALIPLATIN [Suspect]
     Route: 042
  2. LEUCOVORIN CALCIUM [Suspect]
     Route: 042
  3. FLUOROURACIL [Concomitant]
     Route: 065
  4. FLUOROURACIL [Suspect]
     Route: 042
  5. FLUOROURACIL [Suspect]
     Route: 040

REACTIONS (1)
  - NEUROTOXICITY [None]
